FAERS Safety Report 7552729-4 (Version None)
Quarter: 2011Q2

REPORT INFORMATION
  Report Type: 
  Country: None (occurrence: None)
  Receive Date: 20110616
  Receipt Date: 20101025
  Transmission Date: 20111010
  Serious: No
  Sender: FDA-Public Use
  Company Number: US-MYLANLABS-2010S1019704

PATIENT
  Sex: Male

DRUGS (8)
  1. FLUTICASONE PROPIONATE [Concomitant]
     Indication: HYPERSENSITIVITY
     Route: 048
  2. ALPRAZOLAM [Concomitant]
     Indication: ANXIETY
     Route: 048
  3. RITALIN [Concomitant]
     Indication: ATTENTION DEFICIT/HYPERACTIVITY DISORDER
     Route: 048
  4. LYSINE [Concomitant]
     Indication: VITAMIN SUPPLEMENTATION
     Route: 048
  5. XANAX [Concomitant]
     Indication: ANXIETY
     Route: 048
  6. METHYLPHENIDATE [Concomitant]
     Indication: ATTENTION DEFICIT/HYPERACTIVITY DISORDER
     Route: 048
  7. DOXEPIN HYDROCHLORIDE [Suspect]
     Indication: ANXIETY
     Route: 048
  8. M.V.I. [Concomitant]
     Indication: VITAMIN SUPPLEMENTATION
     Route: 048

REACTIONS (2)
  - CHEST DISCOMFORT [None]
  - MYALGIA [None]
